FAERS Safety Report 6361275-5 (Version None)
Quarter: 2009Q3

REPORT INFORMATION
  Report Type: 
  Country: None (occurrence: None)
  Receive Date: 20090918
  Receipt Date: 20090917
  Transmission Date: 20100115
  Serious: Yes (Hospitalization)
  Sender: FDA-Public Use
  Company Number: JP-B.I. PHARMACEUTICALS,INC./RIDGEFIELD-2009-BP-10914NB

PATIENT
  Sex: Male
  Weight: 49 kg

DRUGS (2)
  1. MICARDIS [Suspect]
     Indication: HYPERTENSION
     Dosage: 20 MG
     Route: 048
     Dates: start: 20060914
  2. LASIX [Suspect]
     Indication: CARDIAC FAILURE
     Dosage: 120 MG
     Route: 048

REACTIONS (2)
  - CARDIAC FAILURE [None]
  - DIABETIC NEPHROPATHY [None]
